FAERS Safety Report 6780894-5 (Version None)
Quarter: 2010Q2

REPORT INFORMATION
  Report Type: 
  Country: None (occurrence: None)
  Receive Date: 20100615
  Receipt Date: 20100603
  Transmission Date: 20101027
  Serious: Yes (Other)
  Sender: FDA-Public Use
  Company Number: DSA_43221_2010

PATIENT
  Age: 29 Year
  Sex: Male

DRUGS (3)
  1. ENALAPRIL MALEATE [Suspect]
     Indication: HYPERTENSION
     Dosage: DF INTRAVENOUS (NOT OTHERWISE SPECIFIED))
  2. LABETALOL HYDROCHLORIDE [Suspect]
     Indication: DRUG USE FOR UNKNOWN INDICATION
     Dosage: (DF INTRAVENOUS (NOT OTHERWISE SPECIFIED))
     Route: 042
  3. NITROGLYCERIN [Suspect]
     Indication: DRUG USE FOR UNKNOWN INDICATION
     Dosage: (DF INTRAVENOUS (NOT OTHERWISE SPECIFIED))

REACTIONS (3)
  - ACUTE PULMONARY OEDEMA [None]
  - HYPERTENSION [None]
  - NO THERAPEUTIC RESPONSE [None]
